FAERS Safety Report 4271966-8 (Version None)
Quarter: 2004Q1

REPORT INFORMATION
  Report Type: 
  Country: None (occurrence: None)
  Receive Date: 20040115
  Receipt Date: 20010828
  Transmission Date: 20041129
  Serious: Yes (Hospitalization)
  Sender: FDA-Public Use
  Company Number: 10968436

PATIENT
  Age: 54 Year
  Sex: Female

DRUGS (11)
  1. ATORVASTATIN [Suspect]
     Dosage: DATE OF MOST RECENT DOSE PRIOR TO EVENT = 06-AUG-2001
     Route: 048
     Dates: start: 20010116
  2. GATIFLOXACIN [Suspect]
     Dosage: DATE OF MOST RECENT DOSE PRIOR TO EVENT = 06-AUG-2001
     Route: 048
     Dates: start: 20010202
  3. ATENOLOL [Suspect]
     Dosage: DOSE REDUCED FROM 75 TO 50 MG DAILY AS SYMPTOMS MAY BE DUE TO BETA BLOCKER
     Route: 048
     Dates: start: 20010701
  4. ASPIRIN [Concomitant]
     Route: 048
     Dates: start: 19840101
  5. LOTREL [Concomitant]
     Dosage: -5/20 MILLIGRAMS.
     Route: 048
     Dates: start: 19840101
  6. MEDROXYPROGESTERONE [Concomitant]
     Route: 048
  7. ESTRADIOL [Concomitant]
     Route: 048
  8. HYDROCHLOROTHIAZIDE [Concomitant]
     Dosage: 37.5/25 MILLIGRAMS.
     Route: 048
     Dates: start: 19840101
  9. ACTOS [Concomitant]
     Route: 048
     Dates: start: 20010101
  10. CELEBREX [Concomitant]
     Route: 048
     Dates: start: 19950101
  11. GLUCOVANCE [Concomitant]
     Dosage: -25/500
     Route: 048
     Dates: start: 20010101

REACTIONS (1)
  - ANGINA UNSTABLE [None]
